FAERS Safety Report 10005795 (Version 2)
Quarter: 2014Q1

REPORT INFORMATION
  Report Type: Spontaneous
  Country: CH (occurrence: CH)
  Receive Date: 20140313
  Receipt Date: 20140318
  Transmission Date: 20141002
  Serious: Yes (Other)
  Sender: FDA-Public Use
  Company Number: CH-AMGEN-CHESP2014016430

PATIENT
  Sex: Female

DRUGS (3)
  1. NPLATE [Suspect]
     Indication: PRODUCT USED FOR UNKNOWN INDICATION
     Dosage: 10 MUG/KG, UNK
     Route: 065
  2. NPLATE [Suspect]
     Route: 065
  3. NPLATE [Suspect]
     Route: 065

REACTIONS (1)
  - Therapeutic response decreased [Unknown]
